FAERS Safety Report 12221939 (Version 1)
Quarter: 2016Q1

REPORT INFORMATION
  Report Type: Spontaneous
  Country: US (occurrence: US)
  Receive Date: 20160330
  Receipt Date: 20160330
  Transmission Date: 20160526
  Serious: Yes (Other)
  Sender: FDA-Public Use
  Company Number: US-JNJFOC-20160320929

PATIENT
  Sex: Female

DRUGS (5)
  1. APRISO [Suspect]
     Active Substance: MESALAMINE
     Indication: PRODUCT USED FOR UNKNOWN INDICATION
     Dosage: AS DIRECTED
     Route: 048
  2. OMEPRAZOLE. [Suspect]
     Active Substance: OMEPRAZOLE
     Indication: PRODUCT USED FOR UNKNOWN INDICATION
     Dosage: AS DIRECTED
     Route: 048
  3. ZYRTEC [Suspect]
     Active Substance: CETIRIZINE HYDROCHLORIDE
     Route: 065
  4. ZYRTEC [Suspect]
     Active Substance: CETIRIZINE HYDROCHLORIDE
     Indication: PRODUCT USED FOR UNKNOWN INDICATION
     Route: 065
  5. REMICADE [Suspect]
     Active Substance: INFLIXIMAB
     Indication: PRODUCT USED FOR UNKNOWN INDICATION
     Dosage: AS NEEDED BY INTRAVENOUS ROUTE AS DIRECTED
     Route: 042

REACTIONS (9)
  - Inflammatory bowel disease [Unknown]
  - Eating disorder [Unknown]
  - Hypovitaminosis [Unknown]
  - Crohn^s disease [Unknown]
  - Gastritis [Unknown]
  - Haematochezia [Unknown]
  - Constipation [Unknown]
  - Oesophagitis [Unknown]
  - Weight decreased [Unknown]
